FAERS Safety Report 7950889-4 (Version None)
Quarter: 2011Q4

REPORT INFORMATION
  Report Type: 
  Country: None (occurrence: None)
  Receive Date: 20111201
  Receipt Date: 20111121
  Transmission Date: 20120403
  Serious: Yes (Hospitalization)
  Sender: FDA-Public Use
  Company Number: CA-JNJFOC-20111001330

PATIENT
  Sex: Female
  Weight: 71.67 kg

DRUGS (2)
  1. STELARA [Suspect]
     Route: 058
     Dates: start: 20111101
  2. STELARA [Suspect]
     Indication: PSORIASIS
     Route: 058
     Dates: start: 20100112, end: 20110405

REACTIONS (3)
  - FINGER AMPUTATION [None]
  - SQUAMOUS CELL CARCINOMA [None]
  - DRUG INEFFECTIVE [None]
